FAERS Safety Report 12636259 (Version 1)
Quarter: 2016Q3

REPORT INFORMATION
  Report Type: Spontaneous
  Country: US (occurrence: US)
  Receive Date: 20160809
  Receipt Date: 20160809
  Transmission Date: 20161109
  Serious: No
  Sender: FDA-Public Use
  Company Number: US-BEH-2016072064

PATIENT
  Sex: Female
  Weight: 95.24 kg

DRUGS (27)
  1. EPIPEN [Concomitant]
     Active Substance: EPINEPHRINE
  2. FISH OIL [Concomitant]
     Active Substance: FISH OIL
  3. OXYCODONE [Concomitant]
     Active Substance: OXYCODONE
  4. TRIAMCINOLONE [Concomitant]
     Active Substance: TRIAMCINOLONE
  5. SODIUM CHLORIDE. [Concomitant]
     Active Substance: SODIUM CHLORIDE
  6. CALTRATE WITH VITAMIN D [Concomitant]
     Active Substance: CALCIUM CARBONATE\CHOLECALCIFEROL
  7. ZEMAIRA [Suspect]
     Active Substance: .ALPHA.1-PROTEINASE INHIBITOR HUMAN
     Indication: ALPHA-1 ANTI-TRYPSIN DEFICIENCY
     Dosage: 60 MG/KG, QW
     Route: 042
     Dates: start: 20121227
  8. OXYCONTIN [Concomitant]
     Active Substance: OXYCODONE HYDROCHLORIDE
  9. OMEPRAZOLE. [Concomitant]
     Active Substance: OMEPRAZOLE
  10. LMX                                /00033401/ [Concomitant]
  11. TUMS                               /00193601/ [Concomitant]
     Active Substance: CALCIUM CARBONATE\MAGNESIUM CARBONATE\MAGNESIUM TRISILICATE
  12. FLONASE [Concomitant]
     Active Substance: FLUTICASONE PROPIONATE
  13. DEXILANT [Concomitant]
     Active Substance: DEXLANSOPRAZOLE
  14. SPIRIVA [Concomitant]
     Active Substance: TIOTROPIUM BROMIDE MONOHYDRATE
  15. NORVASC [Concomitant]
     Active Substance: AMLODIPINE BESYLATE
  16. MULTIVITAMINS [Concomitant]
     Active Substance: VITAMINS
  17. AMBIEN [Concomitant]
     Active Substance: ZOLPIDEM TARTRATE
  18. BACTROBAN [Concomitant]
     Active Substance: MUPIROCIN\MUPIROCIN CALCIUM
  19. SYMBICORT [Concomitant]
     Active Substance: BUDESONIDE\FORMOTEROL FUMARATE DIHYDRATE
  20. PROBIOTIC                          /06395501/ [Concomitant]
     Active Substance: BIFIDOBACTERIUM ANIMALIS SUBSP. LACTIS
  21. OCULAR LUBRICANT                   /00445101/ [Concomitant]
  22. NORVASC [Concomitant]
     Active Substance: AMLODIPINE BESYLATE
  23. TENORMIN [Concomitant]
     Active Substance: ATENOLOL
  24. SYNTHROID [Concomitant]
     Active Substance: LEVOTHYROXINE SODIUM
  25. DIPHENHYDRAMINE. [Concomitant]
     Active Substance: DIPHENHYDRAMINE
  26. CLONAZEPAM. [Concomitant]
     Active Substance: CLONAZEPAM
  27. DOXYCYCLINE. [Concomitant]
     Active Substance: DOXYCYCLINE

REACTIONS (1)
  - Upper respiratory tract infection [Unknown]
